FAERS Safety Report 23899241 (Version 2)
Quarter: 2024Q3

REPORT INFORMATION
  Report Type: Report from Study
  Country: US (occurrence: US)
  Receive Date: 20240526
  Receipt Date: 20240705
  Transmission Date: 20241017
  Serious: Yes (Other)
  Sender: AUROBINDO
  Company Number: US-AUROBINDO-AUR-APL-2024-024493

PATIENT
  Age: 26 Year
  Sex: Male

DRUGS (2)
  1. KETAMINE HYDROCHLORIDE [Suspect]
     Active Substance: KETAMINE HYDROCHLORIDE
     Indication: Analgesic therapy
     Dosage: UNK (4 MCG/KG/MIN (215 MCG/MIN FOR 54 KG),)
     Route: 042
  2. KETAMINE HYDROCHLORIDE [Suspect]
     Active Substance: KETAMINE HYDROCHLORIDE
     Dosage: UNK (KETAMINE WAS RESTARTED AT A LOWER RATE OF 3 MCG/KG/MIN AND CONTINUED FOR 90 HOURS)
     Route: 065

REACTIONS (1)
  - Acute stress disorder [Unknown]
